FAERS Safety Report 24335893 (Version 1)
Quarter: 2024Q3

REPORT INFORMATION
  Report Type: Spontaneous
  Country: GB (occurrence: GB)
  Receive Date: 20240919
  Receipt Date: 20240919
  Transmission Date: 20241017
  Serious: Yes (Other)
  Sender: ACCORD
  Company Number: None

PATIENT
  Age: 62 Year
  Sex: Female
  Weight: 73 kg

DRUGS (5)
  1. ATORVASTATIN [Suspect]
     Active Substance: ATORVASTATIN
     Indication: Product used for unknown indication
     Dosage: ATORVASTATIN 20MG TABLETS, TAKE ONE DAILY TO LOWER CHOLESTEROL AND THEREFO
     Dates: start: 20240730
  2. LANSOPRAZOLE [Concomitant]
     Active Substance: LANSOPRAZOLE
     Dosage: TAKE ONE DAILY FOR ULCERS/INDIGESTION AS ON NAP...
     Dates: start: 20221209
  3. NAPROXEN [Concomitant]
     Active Substance: NAPROXEN
     Dosage: TAKE ONE TWICE DAILY FOR PAIN RELIEF +AMP;/OR ARTHR...
     Dates: start: 20221209
  4. ADCAL [Concomitant]
     Dosage: TAKE ONE TWICE DAILY
     Dates: start: 20240221
  5. APIXABAN [Concomitant]
     Active Substance: APIXABAN
     Dosage: TAKE ONE TWICE DAILY
     Dates: start: 20240822

REACTIONS (1)
  - Fixed eruption [Recovering/Resolving]
